FAERS Safety Report 4355535-7 (Version None)
Quarter: 2004Q2

REPORT INFORMATION
  Report Type: 
  Country: None (occurrence: None)
  Receive Date: 20040503
  Receipt Date: 20040406
  Transmission Date: 20050107
  Serious: Yes (Other)
  Sender: FDA-Public Use
  Company Number: US-SHR-03-012681

PATIENT

DRUGS (1)
  1. REFLUDAN [Suspect]
     Dosage: SEE IMAGE
     Route: 042
     Dates: start: 20030802, end: 20030802

REACTIONS (3)
  - ACCIDENTAL OVERDOSE [None]
  - EPISTAXIS [None]
  - HAEMORRHAGE [None]
